FAERS Safety Report 12549098 (Version 1)
Quarter: 2016Q3

REPORT INFORMATION
  Report Type: Spontaneous
  Country: GB (occurrence: GB)
  Receive Date: 20160712
  Receipt Date: 20160712
  Transmission Date: 20161109
  Serious: Yes (Other)
  Sender: FDA-Public Use
  Company Number: GB-TEVA-673513ACC

PATIENT
  Age: 17 Year
  Sex: Female

DRUGS (4)
  1. ARIPIPRAZOLE. [Suspect]
     Active Substance: ARIPIPRAZOLE
     Dosage: 10 MILLIGRAM DAILY; IN MORNING
     Dates: start: 20090206, end: 20090212
  2. RISPERIDONE. [Concomitant]
     Active Substance: RISPERIDONE
  3. ARIPIPRAZOLE. [Suspect]
     Active Substance: ARIPIPRAZOLE
     Dosage: DOSE INCREASED
     Dates: start: 20090204, end: 20090206
  4. PROCYCLIDINE [Concomitant]
     Active Substance: PROCYCLIDINE

REACTIONS (2)
  - Sensation of foreign body [Recovered/Resolved]
  - Dysphagia [Recovered/Resolved]

NARRATIVE: CASE EVENT DATE: 20090209
